FAERS Safety Report 14931262 (Version 2)
Quarter: 2018Q3

REPORT INFORMATION
  Report Type: Report from Study
  Country: ES (occurrence: ES)
  Receive Date: 20180524
  Receipt Date: 20180828
  Transmission Date: 20181010
  Serious: Yes (Hospitalization)
  Sender: FDA-Public Use
  Company Number: ES-TEVA-2018-ES-895901

PATIENT
  Age: 12 Year
  Sex: Female

DRUGS (7)
  1. DEXAMETASONA (722A) [Suspect]
     Active Substance: DEXAMETHASONE
     Indication: ACUTE LYMPHOCYTIC LEUKAEMIA
     Dosage: 34.4 MILLIGRAM DAILY;
     Route: 048
     Dates: start: 20171020, end: 20171024
  2. FILGRASTIM (7089A) [Concomitant]
     Active Substance: FILGRASTIM
     Indication: APLASIA
     Route: 058
     Dates: start: 20171026
  3. ONCASPAR [Suspect]
     Active Substance: PEGASPARGASE
     Indication: ACUTE LYMPHOCYTIC LEUKAEMIA
     Dosage: 1724.8 IU (INTERNATIONAL UNIT) DAILY;
     Route: 030
     Dates: start: 20171025, end: 20171025
  4. ETOPOSIDE. [Suspect]
     Active Substance: ETOPOSIDE
     Indication: ACUTE LYMPHOCYTIC LEUKAEMIA
     Dosage: 345 MILLIGRAM DAILY;
     Route: 042
     Dates: start: 20171022, end: 20171024
  5. SEPTRIN FORTE 160 MG/800 MG COMPRIMIDOS, 50 COMPRIMIDOS [Concomitant]
     Active Substance: SULFAMETHOXAZOLE\TRIMETHOPRIM
     Indication: OPPORTUNISTIC INFECTION PROPHYLAXIS
     Dosage: 1 DOSAGE FORMS DAILY;
     Route: 048
     Dates: start: 20170620
  6. ACICLOVIR (201A) [Concomitant]
     Active Substance: ACYCLOVIR
     Indication: OPPORTUNISTIC INFECTION PROPHYLAXIS
     Route: 048
     Dates: start: 20170620
  7. CITARABINA (124A) [Suspect]
     Active Substance: CYTARABINE
     Indication: ACUTE LYMPHOCYTIC LEUKAEMIA
     Dosage: 6900 MILLIGRAM DAILY;
     Route: 042
     Dates: start: 20171020, end: 20171021

REACTIONS (2)
  - Respiratory tract infection [Recovered/Resolved]
  - Pancytopenia [Recovered/Resolved]

NARRATIVE: CASE EVENT DATE: 20171027
